FAERS Safety Report 8616348-0 (Version None)
Quarter: 2012Q3

REPORT INFORMATION
  Report Type: 
  Country: None (occurrence: None)
  Receive Date: 20120815
  Receipt Date: 20120815
  Transmission Date: 20120928
  Serious: Yes (Disabling, Other)
  Sender: FDA-Public Use
  Company Number: None

PATIENT
  Age: 49 Year
  Sex: Female
  Weight: 78.0187 kg

DRUGS (1)
  1. TRIMETHOPRIM + SULFAMETHOXAZOLE [Suspect]
     Indication: STEVENS-JOHNSON SYNDROME
     Dosage: 1 TABLET 2 TIMES A DAY PO
     Route: 048
     Dates: start: 20120628, end: 20120629

REACTIONS (4)
  - GENERALISED ERYTHEMA [None]
  - THERMAL BURN [None]
  - SKIN EXFOLIATION [None]
  - MADAROSIS [None]
